FAERS Safety Report 22334056 (Version 2)
Quarter: 2023Q2

REPORT INFORMATION
  Report Type: Spontaneous
  Country: GB (occurrence: GB)
  Receive Date: 20230517
  Receipt Date: 20230523
  Transmission Date: 20230722
  Serious: Yes (Death, Other)
  Sender: FDA-Public Use
  Company Number: GB-009507513-2305GBR005116

PATIENT
  Sex: Male

DRUGS (3)
  1. ISENTRESS [Suspect]
     Active Substance: RALTEGRAVIR POTASSIUM
     Dosage: 600MG TAB 60
     Route: 048
  2. DESCOVY [Suspect]
     Active Substance: EMTRICITABINE\TENOFOVIR ALAFENAMIDE FUMARATE
     Indication: HIV infection
     Dosage: 200/25MG TAB 30, ONCE DAILY (OD)
     Route: 048
  3. ATOVAQUONE [Suspect]
     Active Substance: ATOVAQUONE
     Dosage: SUS 750MG/5ML 1

REACTIONS (1)
  - Death [Fatal]
